FAERS Safety Report 9158143 (Version 2)
Quarter: 2013Q1

REPORT INFORMATION
  Report Type: Spontaneous
  Country: BE (occurrence: BE)
  Receive Date: 20130312
  Receipt Date: 20130320
  Transmission Date: 20140127
  Serious: Yes (Disabling, Other)
  Sender: FDA-Public Use
  Company Number: BE-ROCHE-1199186

PATIENT
  Age: 89 Year
  Sex: Male

DRUGS (19)
  1. LUCENTIS [Suspect]
     Indication: AGE-RELATED MACULAR DEGENERATION
     Route: 050
     Dates: start: 20110223
  2. LUCENTIS [Suspect]
     Route: 050
     Dates: start: 20110323
  3. LUCENTIS [Suspect]
     Route: 050
     Dates: start: 20110427
  4. LUCENTIS [Suspect]
     Route: 050
     Dates: start: 20110628
  5. LUCENTIS [Suspect]
     Route: 050
     Dates: start: 20110728
  6. LUCENTIS [Suspect]
     Route: 050
     Dates: start: 20110923
  7. LUCENTIS [Suspect]
     Route: 050
     Dates: start: 20111026
  8. LUCENTIS [Suspect]
     Route: 050
     Dates: start: 20120504
  9. LUCENTIS [Suspect]
     Route: 050
     Dates: start: 20120604
  10. LUCENTIS [Suspect]
     Route: 050
     Dates: start: 20121001
  11. LUCENTIS [Suspect]
     Route: 050
     Dates: start: 20121029
  12. LUCENTIS [Suspect]
     Route: 050
     Dates: start: 20121231
  13. LUCENTIS [Suspect]
     Route: 050
     Dates: start: 20130131, end: 20130131
  14. PLAVIX [Concomitant]
  15. CAPOTEN [Concomitant]
  16. ZURCALE [Concomitant]
  17. TRIBVIT [Concomitant]
  18. TRAZOLAN [Concomitant]
  19. L-THYROXIN [Concomitant]

REACTIONS (4)
  - Retinal haemorrhage [Unknown]
  - Vitreous haematoma [Recovered/Resolved with Sequelae]
  - Eye haemorrhage [Recovered/Resolved with Sequelae]
  - Subretinal fibrosis [Unknown]
